FAERS Safety Report 8577483-9 (Version None)
Quarter: 2012Q3

REPORT INFORMATION
  Report Type: 
  Country: None (occurrence: None)
  Receive Date: 20120807
  Receipt Date: 20120801
  Transmission Date: 20120928
  Serious: Yes (Death, Other)
  Sender: FDA-Public Use
  Company Number: JP-PFIZER INC-2012155244

PATIENT
  Age: 13 Month
  Sex: Female
  Weight: 5.1 kg

DRUGS (24)
  1. REVATIO [Suspect]
     Dosage: 3.67 MG, 3X/DAY
     Route: 048
     Dates: start: 20110221, end: 20110227
  2. REVATIO [Suspect]
     Dosage: 5.67 MG, 3X/DAY
     Route: 048
     Dates: start: 20110308, end: 20110311
  3. REVATIO [Suspect]
     Dosage: 3 MG, 4X/DAY
     Dates: start: 20110318, end: 20110318
  4. ALDACTONE [Concomitant]
     Indication: CARDIAC FAILURE
     Dosage: UNK
     Route: 048
     Dates: end: 20110325
  5. LASIX [Concomitant]
     Indication: CARDIAC FAILURE
     Dosage: UNK
     Route: 048
     Dates: end: 20110325
  6. LEVOTHYROXINE SODIUM [Concomitant]
     Indication: HYPERTHYROIDISM
     Dosage: UNK
     Route: 048
     Dates: end: 20110325
  7. DOBUPUM [Concomitant]
     Indication: RESUSCITATION
     Dosage: UNK
     Route: 042
     Dates: start: 20110315, end: 20110325
  8. PENTAZOCINE LACTATE [Concomitant]
     Indication: SEDATION
     Dosage: UNK
     Route: 042
     Dates: start: 20110324, end: 20110325
  9. REVATIO [Suspect]
     Dosage: 4 MG, 4X/DAY
     Route: 048
     Dates: start: 20110317, end: 20110317
  10. VOLIBRIS [Concomitant]
     Indication: PULMONARY HYPERTENSION
     Dosage: UNK
     Route: 048
     Dates: start: 20110315, end: 20110325
  11. URONASE [Concomitant]
     Indication: THROMBOSIS
     Dosage: UNK
     Route: 042
     Dates: start: 20110309, end: 20110314
  12. CEFACLOR [Concomitant]
     Indication: INFECTION PROPHYLAXIS
     Dosage: UNK
     Route: 048
     Dates: end: 20110325
  13. REVATIO [Suspect]
     Indication: PULMONARY ARTERIAL HYPERTENSION
     Dosage: 0.87 MG, 3X/DAY
     Route: 048
     Dates: start: 20110113, end: 20110202
  14. REVATIO [Suspect]
     Dosage: 3 MG, 3X/DAY
     Route: 048
     Dates: start: 20110210, end: 20110220
  15. REVATIO [Suspect]
     Dosage: 4.67 MG, 3X/DAY
     Route: 048
     Dates: start: 20110228, end: 20110307
  16. REVATIO [Suspect]
     Dosage: 5 MG, 4X/DAY
     Route: 048
     Dates: start: 20110312, end: 20110315
  17. REVATIO [Suspect]
     Dosage: 2.5 MG, 8X/DAY
     Route: 048
     Dates: start: 20110316, end: 20110317
  18. ASPIRIN [Concomitant]
     Indication: SEPSIS
     Dosage: UNK
     Route: 048
     Dates: end: 20110325
  19. MONILAC [Concomitant]
     Indication: CONSTIPATION
     Dosage: UNK
     Dates: start: 20110301, end: 20110324
  20. REVATIO [Suspect]
     Dosage: 2 MG, 3X/DAY
     Route: 048
     Dates: start: 20110202, end: 20110209
  21. REVATIO [Suspect]
     Dosage: 1.5 MG, 4X/DAY
     Dates: start: 20110319
  22. ASPIRIN [Concomitant]
     Indication: THROMBOSIS PROPHYLAXIS
  23. DOPAMINE HCL [Concomitant]
     Indication: RESUSCITATION
     Dosage: UNK
     Route: 042
     Dates: start: 20110315, end: 20110325
  24. MIDAZOLAM HYDROCHLORIDE [Concomitant]
     Indication: SEDATION
     Dosage: UNK
     Route: 042
     Dates: start: 20110301, end: 20110325

REACTIONS (3)
  - HYPOTENSION [None]
  - CARDIAC FAILURE [None]
  - MULTI-ORGAN FAILURE [None]
